FAERS Safety Report 9223712 (Version 1)
Quarter: 2013Q2

REPORT INFORMATION
  Report Type: Spontaneous
  Country: CN (occurrence: CN)
  Receive Date: 20130410
  Receipt Date: 20130410
  Transmission Date: 20140414
  Serious: Yes (Death, Other)
  Sender: FDA-Public Use
  Company Number: PHHY2013CN034819

PATIENT
  Age: 50 Year
  Sex: Female

DRUGS (2)
  1. DOCETAXEL [Suspect]
     Indication: BREAST CANCER
  2. BEVACIZUMAB [Concomitant]
     Indication: BREAST CANCER
     Dosage: 10 MG/KG, TIW

REACTIONS (4)
  - Death [Fatal]
  - Haematotoxicity [Unknown]
  - Gastrointestinal toxicity [Unknown]
  - Therapeutic response decreased [Unknown]
